FAERS Safety Report 13332527 (Version 1)
Quarter: 2017Q1

REPORT INFORMATION
  Report Type: Spontaneous
  Country: US (occurrence: US)
  Receive Date: 20170314
  Receipt Date: 20170314
  Transmission Date: 20170428
  Serious: No
  Sender: FDA-Public Use
  Company Number: None

PATIENT
  Age: 53 Year
  Sex: Male
  Weight: 133.5 kg

DRUGS (1)
  1. ALEMTUZUMAB [Suspect]
     Active Substance: ALEMTUZUMAB
     Indication: TRANSPLANT
     Route: 042
     Dates: start: 20170130, end: 20170201

REACTIONS (3)
  - Hypotension [None]
  - Tachycardia [None]
  - Shock [None]

NARRATIVE: CASE EVENT DATE: 20170201
